FAERS Safety Report 9114928 (Version 1)
Quarter: 2013Q1

REPORT INFORMATION
  Report Type: Spontaneous
  Country: US (occurrence: US)
  Receive Date: 20130128
  Receipt Date: 20130128
  Transmission Date: 20140127
  Serious: Yes (Death)
  Sender: FDA-Public Use
  Company Number: US-ASTRAZENECA-2013SE04716

PATIENT
  Age: 51 Year
  Sex: Male
  Weight: 108.9 kg

DRUGS (7)
  1. LISINOPRIL [Suspect]
     Indication: HYPERTENSION
     Route: 048
     Dates: start: 20100901
  2. STUDY DRUG [Suspect]
     Indication: PSORIASIS
     Route: 048
     Dates: start: 20120620, end: 20120819
  3. OXYCODONE HYDROCHLORIDE [Suspect]
     Indication: BACK PAIN
     Route: 048
     Dates: start: 20110111
  4. METHADONE HYDROCHLORIDE [Suspect]
     Indication: BACK PAIN
     Route: 048
     Dates: start: 20110111
  5. ELAVIL [Suspect]
     Indication: SLEEP DISORDER
     Route: 048
     Dates: start: 20110901
  6. ULTRAM [Concomitant]
     Indication: PAIN
     Route: 048
     Dates: start: 20100901
  7. ALBUTEROL [Concomitant]
     Indication: ASTHMA
     Dosage: THREE PUFFS TID
     Route: 055
     Dates: start: 20111113

REACTIONS (1)
  - Cardiac arrest [Fatal]
